FAERS Safety Report 5378201-8 (Version None)
Quarter: 2007Q3

REPORT INFORMATION
  Report Type: 
  Country: None (occurrence: None)
  Receive Date: 20070705
  Receipt Date: 20070626
  Transmission Date: 20080115
  Serious: Yes (Disabling)
  Sender: FDA-Public Use
  Company Number: US-JNJFOC-20070606633

PATIENT
  Sex: Male
  Weight: 52.16 kg

DRUGS (7)
  1. DURAGESIC-100 [Suspect]
     Indication: PAIN
     Dosage: 100UG/HR + 50UG/HR PATCHES
     Route: 062
  2. PERCOCET [Concomitant]
     Indication: PAIN
     Dosage: 10/325MG AS NEEDED
     Route: 048
  3. OXYCODONE HCL [Concomitant]
     Indication: PAIN
     Dosage: AS NEEDED
     Route: 048
  4. NEURONTIN [Concomitant]
     Indication: NEURALGIA
     Route: 048
  5. LAMICTAL [Concomitant]
     Indication: CONVULSION
     Route: 048
  6. AMITIZA [Concomitant]
     Route: 048
  7. XANAX [Concomitant]
     Dosage: AT BEDTIME
     Route: 048

REACTIONS (2)
  - BEDRIDDEN [None]
  - SPINAL CORD INJURY [None]
